FAERS Safety Report 13894060 (Version 1)
Quarter: 2017Q3

REPORT INFORMATION
  Report Type: Spontaneous
  Country: US (occurrence: US)
  Receive Date: 20170822
  Receipt Date: 20170822
  Transmission Date: 20171127
  Serious: No
  Sender: FDA-Public Use
  Company Number: US-B.I. PHARMACEUTICALS,INC./RIDGEFIELD-2017-BI-045396

PATIENT
  Sex: Female

DRUGS (1)
  1. PRADAXA [Suspect]
     Active Substance: DABIGATRAN ETEXILATE MESYLATE
     Indication: PRODUCT USED FOR UNKNOWN INDICATION
     Dosage: UNKNOWN;  FORM STRENGTH: 75 MG; FORMULATION: CAPSULE? ADMINISTRATION CORRECT? NR(NOT REPORTED) ?ACTI
     Route: 048
     Dates: start: 2014

REACTIONS (2)
  - Rash [Unknown]
  - Skin exfoliation [Unknown]
